FAERS Safety Report 4713068-X (Version None)
Quarter: 2005Q3

REPORT INFORMATION
  Report Type: 
  Country: None (occurrence: None)
  Receive Date: 20050713
  Receipt Date: 20050629
  Transmission Date: 20060218
  Serious: Yes (Other)
  Sender: FDA-Public Use
  Company Number: CA-BRISTOL-MYERS SQUIBB COMPANY-13023494

PATIENT
  Sex: Female

DRUGS (2)
  1. DESYREL [Suspect]
     Indication: INSOMNIA
     Dates: start: 20050601
  2. DESYREL [Suspect]
     Indication: DEPRESSION
     Dates: start: 20050601

REACTIONS (3)
  - DIZZINESS [None]
  - FALL [None]
  - LOSS OF CONSCIOUSNESS [None]
